FAERS Safety Report 10252475 (Version 3)
Quarter: 2014Q4

REPORT INFORMATION
  Report Type: Spontaneous
  Country: CA (occurrence: CA)
  Receive Date: 20140623
  Receipt Date: 20141205
  Transmission Date: 20150528
  Serious: Yes (Hospitalization)
  Sender: FDA-Public Use
  Company Number: CA-PFIZER INC-2014168632

PATIENT

DRUGS (6)
  1. THALIDOMIDE [Suspect]
     Active Substance: THALIDOMIDE
     Indication: PLASMA CELL MYELOMA
     Dosage: RANGE 50 TO 200 MG DAILY (TARGET DOSE OF 200 MG)
     Route: 048
     Dates: start: 199901
  2. DOXORUBICIN HCL [Suspect]
     Active Substance: DOXORUBICIN HYDROCHLORIDE
     Indication: PLASMA CELL MYELOMA
     Dosage: 10 MG/M2, CYCLIC, 1X/DAY
     Route: 042
  3. ETOPOSIDE INJECTION, USP [Suspect]
     Active Substance: ETOPOSIDE
     Indication: PLASMA CELL MYELOMA
     Dosage: 40 MG/M2, CYCLIC 1X/DAY
     Route: 042
     Dates: start: 199901
  4. CISPLATIN INJECTION [Suspect]
     Active Substance: CISPLATIN
     Indication: PLASMA CELL MYELOMA
     Dosage: 10 MG/M2, CYCLIC 1X/DAY
     Route: 042
     Dates: start: 199901
  5. CYCLOPHOSPHAMIDE. [Suspect]
     Active Substance: CYCLOPHOSPHAMIDE
     Indication: PLASMA CELL MYELOMA
     Dosage: 400 MG/M2, CYCLIC 1X/DAY
     Route: 042
     Dates: start: 199901
  6. DEXAMETHASONE. [Suspect]
     Active Substance: DEXAMETHASONE
     Indication: PLASMA CELL MYELOMA
     Dosage: 40 MG, DAILY FOR 4 DAYS
     Route: 048
     Dates: start: 199901

REACTIONS (1)
  - Activities of daily living impaired [Unknown]
